FAERS Safety Report 15126772 (Version 2)
Quarter: 2019Q4

REPORT INFORMATION
  Report Type: Spontaneous
  Country: US (occurrence: US)
  Receive Date: 20180710
  Receipt Date: 20191210
  Transmission Date: 20200122
  Serious: Yes (Other)
  Sender: FDA-Public Use
  Company Number: US-PFIZER INC-2018273991

PATIENT
  Age: 66 Year
  Sex: Female

DRUGS (2)
  1. XELJANZ [Suspect]
     Active Substance: TOFACITINIB CITRATE
     Dosage: 5 MG, DAILY
  2. XELJANZ [Suspect]
     Active Substance: TOFACITINIB CITRATE
     Dosage: 5 MG, UNK
     Dates: start: 20181026

REACTIONS (6)
  - Arthralgia [Not Recovered/Not Resolved]
  - Pyrexia [Unknown]
  - Glycosylated haemoglobin increased [Unknown]
  - Nasopharyngitis [Unknown]
  - Diabetes mellitus [Unknown]
  - Malaise [Unknown]
